FAERS Safety Report 4982728-8 (Version None)
Quarter: 2006Q2

REPORT INFORMATION
  Report Type: 
  Country: None (occurrence: None)
  Receive Date: 20060420
  Receipt Date: 20060405
  Transmission Date: 20061013
  Serious: Yes (Hospitalization)
  Sender: FDA-Public Use
  Company Number: SUSI-2006-00392

PATIENT
  Age: 44 Year
  Sex: Male
  Weight: 82.5 kg

DRUGS (11)
  1. ADDERALL XR 30 [Suspect]
     Indication: ATTENTION DEFICIT/HYPERACTIVITY DISORDER
     Dosage: 30 MG DAILY, ORAL
     Route: 048
     Dates: end: 20060125
  2. AVINZA [Suspect]
     Indication: PAIN
     Dosage: UP TO 90 MG DAILY, ORAL
     Route: 048
     Dates: end: 20060125
  3. PEG-INTRON [Suspect]
     Indication: HEPATITIS C
     Dosage: 0.41 ML, 1X/WEEK, SUBCUTANEOUS
     Route: 058
     Dates: start: 20050107, end: 20051210
  4. RIBAVIRIN [Suspect]
     Indication: HEPATITIS C
     Dosage: 1000 MG DAILY, ORAL
     Route: 048
     Dates: start: 20050107, end: 20051215
  5. METHADONE HCL [Concomitant]
  6. LEXAPRO [Concomitant]
  7. SYNTHROID [Concomitant]
  8. HYDROCODONE BITARTRATE [Concomitant]
  9. OXYCONTIN [Concomitant]
  10. LYRICA [Concomitant]
  11. CLONIDINE [Concomitant]

REACTIONS (7)
  - DEPRESSION [None]
  - DRUG INTERACTION [None]
  - HALLUCINATION, AUDITORY [None]
  - INSOMNIA [None]
  - PARANOIA [None]
  - PRESCRIBED OVERDOSE [None]
  - PSYCHOTIC DISORDER [None]
